FAERS Safety Report 7009084-8 (Version None)
Quarter: 2010Q3

REPORT INFORMATION
  Report Type: 
  Country: None (occurrence: None)
  Receive Date: 20100923
  Receipt Date: 20100819
  Transmission Date: 20110219
  Serious: No
  Sender: FDA-Public Use
  Company Number: US-BAYER-201020184BCC

PATIENT
  Age: 54 Year
  Sex: Female
  Weight: 104 kg

DRUGS (11)
  1. ALEVE (CAPLET) [Suspect]
     Indication: ARTHRITIS
     Dosage: TOTAL DAILY DOSE: 440 MG  UNIT DOSE: 220 MG
     Route: 048
     Dates: start: 20100101
  2. BYETTA [Concomitant]
     Route: 065
  3. METFORMIN [Concomitant]
     Route: 065
  4. GLYBURIDE [Concomitant]
     Route: 065
  5. HYDROCHLOROTHIAZIDE [Concomitant]
     Route: 065
  6. ACARBOSE [Concomitant]
     Dosage: UNIT DOSE: 50 MG
     Route: 065
  7. LISINOPRIL [Concomitant]
     Route: 065
  8. ATENOLOL [Concomitant]
     Route: 065
  9. TOPIRAMATE [Concomitant]
     Dosage: UNIT DOSE: 25 MG
     Route: 065
  10. ASPIRIN [Concomitant]
     Route: 065
  11. VITAMIN D [Concomitant]
     Route: 065

REACTIONS (1)
  - OEDEMA PERIPHERAL [None]
